FAERS Safety Report 9134892 (Version 1)
Quarter: 2013Q1

REPORT INFORMATION
  Report Type: Spontaneous
  Country: US (occurrence: US)
  Receive Date: 20130304
  Receipt Date: 20130304
  Transmission Date: 20140127
  Serious: Yes (Hospitalization, Other)
  Sender: FDA-Public Use
  Company Number: US-SANOFI-AVENTIS-2013SA020479

PATIENT
  Age: 80 Year
  Sex: Male

DRUGS (9)
  1. LANTUS [Suspect]
     Dosage: DOSE:10 UNIT(S)
     Route: 051
     Dates: start: 201207
  2. HYDRALAZINE [Concomitant]
  3. METOPROLOL [Concomitant]
  4. MIRALAX [Concomitant]
  5. DUONEB [Concomitant]
     Indication: CHRONIC OBSTRUCTIVE PULMONARY DISEASE
  6. LEVOTHROID [Concomitant]
  7. PROTONIX [Concomitant]
  8. VITAMIN C [Concomitant]
  9. COUMADIN [Concomitant]

REACTIONS (3)
  - Hospitalisation [Unknown]
  - Diabetes mellitus inadequate control [Unknown]
  - Visual impairment [Unknown]
